FAERS Safety Report 15789430 (Version 1)
Quarter: 2018Q4

REPORT INFORMATION
  Report Type: Spontaneous
  Country: US (occurrence: US)
  Receive Date: 20181213
  Receipt Date: 20181213
  Transmission Date: 20190205
  Serious: No
  Sender: FDA-Public Use
  Company Number: None

PATIENT
  Age: 58 Year
  Sex: Female

DRUGS (1)
  1. GAMMAGARD [Suspect]
     Active Substance: HUMAN IMMUNOGLOBULIN G
     Indication: EHLERS-DANLOS SYNDROME
     Dosage: ?          OTHER STRENGTH:5/50 GM/ML;?
     Route: 042

REACTIONS (1)
  - Vertigo [None]

NARRATIVE: CASE EVENT DATE: 20181205
